FAERS Safety Report 9888330 (Version 2)
Quarter: 2014Q1

REPORT INFORMATION
  Report Type: Spontaneous
  Country: CA (occurrence: None)
  Receive Date: 20140207
  Receipt Date: 20140324
  Transmission Date: 20141002
  Serious: Yes (Hospitalization)
  Sender: FDA-Public Use
  Company Number: UTC-044042

PATIENT
  Age: 59 Year
  Sex: Male

DRUGS (1)
  1. REMODULIN [Suspect]
     Indication: PULMONARY ARTERIAL HYPERTENSION
     Dosage: 0.032 ML PER HOUR (1 IN 1 MIN)
     Route: 058
     Dates: start: 20130426

REACTIONS (4)
  - Dyspnoea [None]
  - Loss of consciousness [None]
  - Fall [None]
  - Sinusitis [None]
